FAERS Safety Report 8029611-1 (Version None)
Quarter: 2012Q1

REPORT INFORMATION
  Report Type: 
  Country: None (occurrence: None)
  Receive Date: 20120109
  Receipt Date: 20120105
  Transmission Date: 20120608
  Serious: No
  Sender: FDA-Public Use
  Company Number: US-PFIZER INC-2012004043

PATIENT
  Sex: Female
  Weight: 47.6 kg

DRUGS (1)
  1. PREMARIN [Suspect]
     Indication: INADEQUATE LUBRICATION
     Dosage: UNK, 3X/DAY
     Route: 067
     Dates: start: 20111201, end: 20111201

REACTIONS (1)
  - VULVOVAGINAL BURNING SENSATION [None]
